FAERS Safety Report 9550767 (Version 1)
Quarter: 2013Q3

REPORT INFORMATION
  Report Type: Spontaneous
  Country: US (occurrence: US)
  Receive Date: 20130924
  Receipt Date: 20130924
  Transmission Date: 20140515
  Serious: No
  Sender: FDA-Public Use
  Company Number: US-SANOFI-AVENTIS-2013SA023798

PATIENT
  Age: 44 Year
  Sex: Female

DRUGS (1)
  1. TERIFLUNOMIDE [Suspect]
     Indication: MULTIPLE SCLEROSIS
     Dosage: THERAPY START DATE - 29 OR 30 JAN 2013
     Route: 048
     Dates: start: 201301, end: 20130702

REACTIONS (6)
  - Nasopharyngitis [Unknown]
  - Multiple allergies [Unknown]
  - Neck pain [Recovering/Resolving]
  - Diarrhoea [Not Recovered/Not Resolved]
  - Alopecia [Not Recovered/Not Resolved]
  - Hepatic enzyme increased [Not Recovered/Not Resolved]
